FAERS Safety Report 9447842 (Version 3)
Quarter: 2013Q4

REPORT INFORMATION
  Report Type: Spontaneous
  Country: BR (occurrence: BR)
  Receive Date: 20130808
  Receipt Date: 20131031
  Transmission Date: 20140711
  Serious: Yes (Other)
  Sender: FDA-Public Use
  Company Number: BR-AMGEN-BRASP2013055322

PATIENT
  Age: 61 Year
  Sex: Female
  Weight: 52 kg

DRUGS (8)
  1. ENBREL [Suspect]
     Indication: RHEUMATOID ARTHRITIS
     Dosage: 50 MG, QWK
     Route: 058
     Dates: start: 201207
  2. ENBREL [Suspect]
     Dosage: UNK
     Route: 065
     Dates: start: 201308
  3. HUMIRA [Concomitant]
     Dosage: UNK
     Route: 065
  4. CALCIUM [Concomitant]
     Indication: OSTEOPOROSIS
     Dosage: UNK
     Route: 065
  5. PURAN T4 [Concomitant]
     Indication: HYPERTHYROIDISM
     Dosage: UNK
     Route: 065
  6. ATENOLOL W/NIFEDIPINE [Concomitant]
     Indication: HYPERTENSION
     Dosage: ATENOLOL STRENGTH 50MG AND NIFEDIPINE STRENGTH UNSPECIFIED
     Route: 065
  7. GARDENAL                           /00023201/ [Concomitant]
     Dosage: 100 MG, UNK
     Route: 065
  8. RIVOTRIL [Concomitant]
     Indication: SLEEP DISORDER
     Dosage: 2 MG, UNK
     Route: 065

REACTIONS (5)
  - Weight decreased [Not Recovered/Not Resolved]
  - Nephrolithiasis [Unknown]
  - Thyroid cancer [Unknown]
  - Paraneoplastic syndrome [Unknown]
  - Cachexia [Unknown]
